FAERS Safety Report 14851998 (Version 1)
Quarter: 2018Q2

REPORT INFORMATION
  Report Type: Report from Study
  Country: FR (occurrence: FR)
  Receive Date: 20180507
  Receipt Date: 20180507
  Transmission Date: 20180711
  Serious: Yes (Death, Other)
  Sender: FDA-Public Use
  Company Number: FR-ACCORD-066548

PATIENT
  Age: 66 Year
  Sex: Male

DRUGS (4)
  1. ARACYTINE [Suspect]
     Active Substance: CYTARABINE
     Indication: TRANSPLANT
  2. ETOPOSIDE. [Suspect]
     Active Substance: ETOPOSIDE
     Indication: TRANSPLANT
  3. RITUXIMAB. [Suspect]
     Active Substance: RITUXIMAB
     Indication: TRANSPLANT
  4. MELPHALAN. [Suspect]
     Active Substance: MELPHALAN
     Indication: TRANSPLANT
     Dosage: UNK

REACTIONS (3)
  - Off label use [Unknown]
  - Human herpesvirus 6 infection [Recovered/Resolved]
  - Disease recurrence [Fatal]
